FAERS Safety Report 23432172 (Version 3)
Quarter: 2024Q1

REPORT INFORMATION
  Report Type: Spontaneous
  Country: SK (occurrence: SK)
  Receive Date: 20240123
  Receipt Date: 20240226
  Transmission Date: 20240409
  Serious: Yes (Other)
  Sender: FDA-Public Use
  Company Number: None

PATIENT
  Age: 34 Year
  Sex: Male

DRUGS (38)
  1. LEVETIRACETAM [Suspect]
     Active Substance: LEVETIRACETAM
     Indication: Generalised tonic-clonic seizure
     Dosage: 4000 MILLIGRAM, DAILY (TABLET)
     Route: 048
     Dates: start: 202209
  2. LEVETIRACETAM [Suspect]
     Active Substance: LEVETIRACETAM
     Indication: Partial seizures
     Dosage: 4000 MILLIGRAM, DAILY (TABLET)
     Route: 048
     Dates: start: 202210
  3. LEVETIRACETAM [Suspect]
     Active Substance: LEVETIRACETAM
     Indication: Partial seizures with secondary generalisation
  4. LEVETIRACETAM [Suspect]
     Active Substance: LEVETIRACETAM
     Indication: Focal dyscognitive seizures
  5. LACOSAMIDE [Suspect]
     Active Substance: LACOSAMIDE
     Indication: Generalised tonic-clonic seizure
     Dosage: UNK
  6. LACOSAMIDE [Suspect]
     Active Substance: LACOSAMIDE
     Indication: Partial seizures
  7. PHENYTOIN [Suspect]
     Active Substance: PHENYTOIN
     Indication: Generalised tonic-clonic seizure
     Dosage: 500 MILLIGRAM, DAILY
     Route: 048
     Dates: start: 202209
  8. PHENYTOIN [Suspect]
     Active Substance: PHENYTOIN
     Indication: Partial seizures
     Dosage: 400 MILLIGRAM, ONCE DAILY (QD)
     Route: 048
  9. PHENYTOIN [Suspect]
     Active Substance: PHENYTOIN
     Indication: Seizure
     Dosage: 150-100-150 MG
     Route: 048
     Dates: start: 202210
  10. PHENYTOIN [Suspect]
     Active Substance: PHENYTOIN
     Indication: Partial seizures with secondary generalisation
  11. PHENYTOIN [Suspect]
     Active Substance: PHENYTOIN
     Indication: Focal dyscognitive seizures
  12. CLOBAZAM [Suspect]
     Active Substance: CLOBAZAM
     Indication: Generalised tonic-clonic seizure
     Dosage: 30 MILLIGRAM, ONCE DAILY (QD),  REDUCE TO 20 MG PER DAY
     Route: 048
     Dates: start: 202209
  13. CLOBAZAM [Suspect]
     Active Substance: CLOBAZAM
     Indication: Partial seizures
     Dosage: 20 MILLIGRAM, ONCE DAILY (QD)
     Route: 048
  14. CLOBAZAM [Suspect]
     Active Substance: CLOBAZAM
     Indication: Seizure
     Dosage: 30 MILLIGRAM
     Route: 048
     Dates: start: 202210
  15. CLOBAZAM [Suspect]
     Active Substance: CLOBAZAM
     Indication: Focal dyscognitive seizures
  16. CLOBAZAM [Suspect]
     Active Substance: CLOBAZAM
     Indication: Partial seizures with secondary generalisation
  17. CENOBAMATE [Suspect]
     Active Substance: CENOBAMATE
     Indication: Generalised tonic-clonic seizure
     Dosage: 400 MILLIGRAM, QD (INCREASING DOSE UP TO A DOSE OF  400 MG PER DAY)
     Route: 048
     Dates: start: 202209
  18. CENOBAMATE [Suspect]
     Active Substance: CENOBAMATE
     Indication: Partial seizures
     Dosage: UNK
     Route: 048
     Dates: start: 202210
  19. CENOBAMATE [Suspect]
     Active Substance: CENOBAMATE
     Indication: Focal dyscognitive seizures
  20. CENOBAMATE [Suspect]
     Active Substance: CENOBAMATE
     Indication: Partial seizures with secondary generalisation
  21. VALPROATE [Suspect]
     Active Substance: VALPROIC ACID
     Indication: Generalised tonic-clonic seizure
     Dosage: 3500 MILLIGRAM, PER DAY
     Route: 048
     Dates: start: 202209
  22. VALPROATE [Suspect]
     Active Substance: VALPROIC ACID
     Indication: Partial seizures
     Dosage: 1000-0-750 MG
     Route: 048
     Dates: start: 202210
  23. VALPROATE [Suspect]
     Active Substance: VALPROIC ACID
     Indication: Focal dyscognitive seizures
  24. VALPROATE [Suspect]
     Active Substance: VALPROIC ACID
     Indication: Partial seizures with secondary generalisation
  25. PREGABALIN [Suspect]
     Active Substance: PREGABALIN
     Indication: Partial seizures
     Dosage: UNK
  26. PREGABALIN [Suspect]
     Active Substance: PREGABALIN
     Indication: Generalised tonic-clonic seizure
  27. LAMOTRIGINE [Suspect]
     Active Substance: LAMOTRIGINE
     Indication: Partial seizures
     Dosage: UNK
  28. LAMOTRIGINE [Suspect]
     Active Substance: LAMOTRIGINE
     Indication: Generalised tonic-clonic seizure
  29. TOPIRAMATE [Suspect]
     Active Substance: TOPIRAMATE
     Indication: Partial seizures
     Dosage: UNK
  30. TOPIRAMATE [Suspect]
     Active Substance: TOPIRAMATE
     Indication: Generalised tonic-clonic seizure
  31. CARBAMAZEPINE [Suspect]
     Active Substance: CARBAMAZEPINE
     Indication: Generalised tonic-clonic seizure
     Dosage: UNK
  32. CARBAMAZEPINE [Suspect]
     Active Substance: CARBAMAZEPINE
     Indication: Partial seizures
  33. ZONISAMIDE [Suspect]
     Active Substance: ZONISAMIDE
     Indication: Generalised tonic-clonic seizure
     Dosage: UNK
  34. ZONISAMIDE [Suspect]
     Active Substance: ZONISAMIDE
     Indication: Partial seizures
  35. CLONAZEPAM [Suspect]
     Active Substance: CLONAZEPAM
     Indication: Generalised tonic-clonic seizure
     Dosage: UNK
  36. CLONAZEPAM [Suspect]
     Active Substance: CLONAZEPAM
     Indication: Partial seizures
  37. EZOGABINE [Suspect]
     Active Substance: EZOGABINE
     Indication: Generalised tonic-clonic seizure
     Dosage: UNK
  38. EZOGABINE [Suspect]
     Active Substance: EZOGABINE
     Indication: Partial seizures

REACTIONS (8)
  - Seizure [Recovering/Resolving]
  - Hyperammonaemia [Recovered/Resolved]
  - Sedation [Recovered/Resolved]
  - Confusional state [Recovered/Resolved]
  - Electroencephalogram abnormal [Recovered/Resolved]
  - Multiple-drug resistance [Unknown]
  - Prescribed overdose [Unknown]
  - Off label use [Unknown]
